FAERS Safety Report 9727347 (Version 1)
Quarter: 2020Q3

REPORT INFORMATION
  Report Type: Spontaneous
  Country: NL (occurrence: None)
  Receive Date: 20131129
  Receipt Date: 20131129
  Transmission Date: 20201105
  Serious: Yes (Other)
  Sender: FDA-Public Use
  Company Number: 2013AP009914

PATIENT
  Sex: Female

DRUGS (4)
  1. LETROZOLE. [Suspect]
     Active Substance: LETROZOLE
  2. ALENDRONIC ACID (ALENDRONIC ACID) [Suspect]
     Active Substance: ALENDRONIC ACID
     Dosage: UNKNOWN; UNK; QW
  3. IBANDRONIC ACID. [Suspect]
     Active Substance: IBANDRONIC ACID
  4. CALCIUM D3 /01487301/ (CALCIUM D3) [Concomitant]

REACTIONS (5)
  - Hyperhidrosis [None]
  - Flushing [None]
  - Vision blurred [None]
  - Gait disturbance [None]
  - Headache [None]
